FAERS Safety Report 16191830 (Version 1)
Quarter: 2019Q2

REPORT INFORMATION
  Report Type: Spontaneous
  Country: PL (occurrence: PL)
  Receive Date: 20190412
  Receipt Date: 20190412
  Transmission Date: 20190711
  Serious: Yes (Death, Other)
  Sender: FDA-Public Use
  Company Number: PL-009507513-1904POL003422

PATIENT
  Age: 82 Year
  Sex: Female

DRUGS (3)
  1. ZEPATIER [Suspect]
     Active Substance: ELBASVIR\GRAZOPREVIR
     Indication: ANTIVIRAL TREATMENT
     Dosage: UNK
     Route: 048
     Dates: start: 20190226
  2. BETO ZK [Concomitant]
     Active Substance: METOPROLOL SUCCINATE
     Dosage: 1 TABLET TWICE A DAY
     Route: 048
  3. ACARD [Concomitant]
     Active Substance: ASPIRIN
     Dosage: 75 MG ONCE A DAY

REACTIONS (2)
  - Cerebrovascular accident [Unknown]
  - Death [Fatal]

NARRATIVE: CASE EVENT DATE: 2019
